FAERS Safety Report 18758120 (Version 1)
Quarter: 2021Q1

REPORT INFORMATION
  Report Type: Spontaneous
  Country: CA (occurrence: CA)
  Receive Date: 20210119
  Receipt Date: 20210119
  Transmission Date: 20210419
  Serious: Yes (Death, Hospitalization, Other)
  Sender: FDA-Public Use
  Company Number: CA-BAYER-2021-020249

PATIENT
  Sex: Female

DRUGS (8)
  1. FEIBA NF [Suspect]
     Active Substance: ANTI-INHIBITOR COAGULANT COMPLEX
     Indication: ACQUIRED HAEMOPHILIA
     Route: 042
  2. KOGENATE [Suspect]
     Active Substance: ANTIHEMOPHILIC FACTOR, HUMAN RECOMBINANT
     Indication: ACQUIRED HAEMOPHILIA
  3. NIASTASE [Suspect]
     Active Substance: COAGULATION FACTOR VIIA RECOMBINANT HUMAN
  4. PREDNISONE. [Suspect]
     Active Substance: PREDNISONE
  5. CYCLOPHOSPHAMIDE. [Suspect]
     Active Substance: CYCLOPHOSPHAMIDE
  6. RITUXIMAB. [Suspect]
     Active Substance: RITUXIMAB
  7. PROCYTOX [Suspect]
     Active Substance: CYCLOPHOSPHAMIDE
  8. FACTOR VII (PROCONVERTIN) [Suspect]
     Active Substance: COAGULATION FACTOR VII HUMAN
     Indication: ACQUIRED HAEMOPHILIA

REACTIONS (4)
  - Pre-existing disease [Fatal]
  - Acquired haemophilia [Fatal]
  - Therapy partial responder [Fatal]
  - Therapy responder [Fatal]
